FAERS Safety Report 8421582-9 (Version None)
Quarter: 2012Q2

REPORT INFORMATION
  Report Type: 
  Country: None (occurrence: None)
  Receive Date: 20120323
  Receipt Date: 20111220
  Transmission Date: 20120825
  Serious: Yes (Hospitalization, Other)
  Sender: FDA-Public Use
  Company Number: 163-21880-11122706

PATIENT
  Age: 83 Year
  Sex: Female

DRUGS (10)
  1. NEXIUM [Concomitant]
  2. ZOMETA [Concomitant]
  3. LOMOTIL [Concomitant]
  4. NASONEX [Concomitant]
  5. TRAMADOL HCL [Concomitant]
  6. LENALIDOMIDE [Suspect]
     Indication: MULTIPLE MYELOMA
     Dosage: 5 MG, EVERY 3 DAYS, PO
     Route: 048
     Dates: start: 20071010
  7. COUMADIN [Concomitant]
  8. MELOXICAM [Concomitant]
  9. SYNTHROID [Concomitant]
  10. FLINTSTONES (MULTIVITAMINS) [Concomitant]

REACTIONS (2)
  - FALL [None]
  - FEMUR FRACTURE [None]
